FAERS Safety Report 10636571 (Version 2)
Quarter: 2018Q2

REPORT INFORMATION
  Report Type: Spontaneous
  Country: VN (occurrence: VN)
  Receive Date: 20141208
  Receipt Date: 20180522
  Transmission Date: 20180711
  Serious: Yes (Other)
  Sender: FDA-Public Use
  Company Number: VN-ROCHE-1500087

PATIENT
  Age: 50 Year
  Sex: Female

DRUGS (4)
  1. XELODA [Suspect]
     Active Substance: CAPECITABINE
     Indication: BREAST CANCER
     Dosage: D1-D14 PER21 DAY CYCLE COMBINED WITH HERCEPTIN
     Route: 065
     Dates: start: 20121002, end: 201311
  2. XELODA [Suspect]
     Active Substance: CAPECITABINE
     Dosage: COMBINED WITH DOCETAXEL+BPP
     Route: 065
     Dates: start: 201407, end: 201409
  3. HERCEPTIN [Suspect]
     Active Substance: TRASTUZUMAB
     Indication: BREAST CANCER
     Route: 042
  4. XELODA [Suspect]
     Active Substance: CAPECITABINE
     Dosage: COMBINED WITH WITH NAVELBERIN
     Route: 048
     Dates: start: 201409

REACTIONS (5)
  - Metastasis [Unknown]
  - Vision blurred [Recovered/Resolved]
  - Off label use [Unknown]
  - Stomatitis [Recovered/Resolved]
  - Breast cancer [Unknown]
